FAERS Safety Report 5137002-6 (Version None)
Quarter: 2006Q4

REPORT INFORMATION
  Report Type: 
  Country: None (occurrence: None)
  Receive Date: 20061030
  Receipt Date: 20061019
  Transmission Date: 20070319
  Serious: Yes (Hospitalization)
  Sender: FDA-Public Use
  Company Number: US-JNJFOC-20061004413

PATIENT
  Sex: Female

DRUGS (17)
  1. INFLIXIMAB [Suspect]
     Indication: RHEUMATOID ARTHRITIS
  2. ALTACE [Concomitant]
  3. AMBIEN [Concomitant]
  4. AZULFIDINE [Concomitant]
  5. CALCIUM GLUCONATE [Concomitant]
  6. COREG [Concomitant]
  7. ENTERIC ASPIRIN [Concomitant]
  8. FOLIC ACID [Concomitant]
  9. GLIPZIDE [Concomitant]
  10. GLUCOSAMINE [Concomitant]
  11. KLOR-CON [Concomitant]
  12. LASIX [Concomitant]
  13. MULTI-VITAMIN [Concomitant]
  14. NIACIN [Concomitant]
  15. SYNTHROID [Concomitant]
  16. TRAZODONE HCL [Concomitant]
  17. IRON [Concomitant]

REACTIONS (1)
  - VASCULAR PSEUDOANEURYSM [None]
